FAERS Safety Report 6645619-2 (Version None)
Quarter: 2010Q1

REPORT INFORMATION
  Report Type: 
  Country: None (occurrence: None)
  Receive Date: 20100323
  Receipt Date: 20100312
  Transmission Date: 20100710
  Serious: No
  Sender: FDA-Public Use
  Company Number: US-JNJFOC-20100100310

PATIENT
  Sex: Female
  Weight: 46.27 kg

DRUGS (1)
  1. REMICADE [Suspect]
     Indication: PSORIATIC ARTHROPATHY
     Dosage: DOSAGE OF ^2 VIALS^
     Route: 042
     Dates: start: 20091216

REACTIONS (3)
  - ABDOMINAL DISCOMFORT [None]
  - DYSGEUSIA [None]
  - RASH MACULAR [None]
